FAERS Safety Report 12896519 (Version 1)
Quarter: 2016Q4

REPORT INFORMATION
  Report Type: Spontaneous
  Country: US (occurrence: US)
  Receive Date: 20161031
  Receipt Date: 20161031
  Transmission Date: 20170207
  Serious: Yes (Other)
  Sender: FDA-Public Use
  Company Number: PHEH2016US027550

PATIENT
  Sex: Male
  Weight: 81.92 kg

DRUGS (5)
  1. LYRICA [Suspect]
     Active Substance: PREGABALIN
     Dosage: UNK
     Route: 048
     Dates: start: 20151230
  2. TEGRETOL [Suspect]
     Active Substance: CARBAMAZEPINE
     Indication: EPILEPSY
     Dosage: 3 DF, BID
     Route: 065
  3. LYRICA [Suspect]
     Active Substance: PREGABALIN
     Indication: EPILEPSY
     Dosage: UNK
     Route: 048
     Dates: start: 20150626
  4. LYRICA [Suspect]
     Active Substance: PREGABALIN
     Dosage: 1 DF, BID
     Route: 048
     Dates: start: 20160719
  5. CARBATROL [Concomitant]
     Active Substance: CARBAMAZEPINE
     Indication: PRODUCT USED FOR UNKNOWN INDICATION
     Dosage: 200 MG, BID
     Route: 065
     Dates: start: 20151230

REACTIONS (3)
  - Contusion [Unknown]
  - Generalised tonic-clonic seizure [Unknown]
  - Drug intolerance [Unknown]
